FAERS Safety Report 8743393 (Version 3)
Quarter: 2013Q1

REPORT INFORMATION
  Report Type: Report from Study
  Country: US (occurrence: US)
  Receive Date: 20120824
  Receipt Date: 20130131
  Transmission Date: 20140127
  Serious: Yes (Hospitalization, Other)
  Sender: FDA-Public Use
  Company Number: US-ACTELION-A-US2011-58445

PATIENT
  Age: 73 Year
  Sex: Female

DRUGS (1)
  1. TRACLEER [Suspect]
     Indication: PULMONARY ARTERIAL HYPERTENSION
     Dosage: UNK
     Route: 048

REACTIONS (5)
  - Cardiac pacemaker insertion [Unknown]
  - Aortic valve replacement [Recovering/Resolving]
  - Tricuspid valve repair [Recovering/Resolving]
  - Cardiac valve disease [Unknown]
  - Cardiac murmur [Unknown]
